FAERS Safety Report 14284069 (Version 1)
Quarter: 2017Q4

REPORT INFORMATION
  Report Type: Spontaneous
  Country: US (occurrence: US)
  Receive Date: 20171214
  Receipt Date: 20171214
  Transmission Date: 20180321
  Serious: Yes (Disabling)
  Sender: FDA-Public Use
  Company Number: None

PATIENT
  Age: 73 Year
  Sex: Male
  Weight: 80.1 kg

DRUGS (20)
  1. MONTELUKAST [Suspect]
     Active Substance: MONTELUKAST SODIUM
     Indication: SINUSITIS
     Dosage: ?          QUANTITY:1 TABLET(S);?
     Route: 048
     Dates: start: 20171204, end: 20171210
  2. BUDESONIDE. [Concomitant]
     Active Substance: BUDESONIDE
  3. FAMITIDINE [Concomitant]
  4. AVAPRO [Concomitant]
     Active Substance: IRBESARTAN
  5. ASA [Concomitant]
     Active Substance: ASPIRIN
  6. VITAMIN B12 [Concomitant]
     Active Substance: CYANOCOBALAMIN
  7. COQ 10 [Concomitant]
     Active Substance: UBIDECARENONE
  8. NORVASC [Concomitant]
     Active Substance: AMLODIPINE BESYLATE
  9. MONTELUKAST [Suspect]
     Active Substance: MONTELUKAST SODIUM
     Indication: ASTHMA PROPHYLAXIS
     Dosage: ?          QUANTITY:1 TABLET(S);?
     Route: 048
     Dates: start: 20171204, end: 20171210
  10. ATENELOL [Concomitant]
     Active Substance: ATENOLOL
  11. XYZAL [Concomitant]
     Active Substance: LEVOCETIRIZINE DIHYDROCHLORIDE
  12. CRESTOR [Concomitant]
     Active Substance: ROSUVASTATIN CALCIUM
  13. ASFUZOSIN [Concomitant]
  14. CENTRUM SILVER [Concomitant]
     Active Substance: MINERALS\VITAMINS
  15. ACIPHEX [Concomitant]
     Active Substance: RABEPRAZOLE SODIUM
  16. ALPRAZOLAM. [Concomitant]
     Active Substance: ALPRAZOLAM
  17. SINGULAIR [Concomitant]
     Active Substance: MONTELUKAST SODIUM
  18. TRILIPIX [Concomitant]
     Active Substance: FENOFIBRIC ACID
  19. LEXAPRO [Concomitant]
     Active Substance: ESCITALOPRAM OXALATE
  20. NEIL-MED SINUS RINSES [Concomitant]

REACTIONS (2)
  - Abdominal pain [None]
  - Product substitution issue [None]

NARRATIVE: CASE EVENT DATE: 20171205
